FAERS Safety Report 9259431 (Version 2)
Quarter: 2013Q2

REPORT INFORMATION
  Report Type: Report from Study
  Country: IT (occurrence: IT)
  Receive Date: 20130427
  Receipt Date: 20130524
  Transmission Date: 20140414
  Serious: Yes (Other)
  Sender: FDA-Public Use
  Company Number: IT-ROCHE-1217022

PATIENT
  Age: 60 Year
  Sex: Male
  Weight: 62 kg

DRUGS (7)
  1. BEVACIZUMAB [Suspect]
     Indication: COLON CANCER
     Dosage: LAST DOSE PRIOR TO SAE- 05 MAR 2013
     Route: 042
     Dates: start: 20121210, end: 20130307
  2. IRINOTECAN [Suspect]
     Indication: COLON CANCER
     Dosage: LAST DOSE PRIOR TO SAE- 05 MAR 2013
     Route: 042
     Dates: start: 20121210, end: 20130307
  3. OXALIPLATIN [Suspect]
     Indication: COLON CANCER
     Dosage: LAST DOSE PRIOR TO SAE- 05 MAR 2013
     Route: 042
     Dates: start: 20121210, end: 20130307
  4. FLUOROURACIL [Suspect]
     Indication: COLON CANCER
     Dosage: LAST DOSE PRIOR TO SAE- 05 MAR 2013
     Route: 042
     Dates: start: 20121210, end: 20130307
  5. RAMIPRIL [Concomitant]
     Route: 065
     Dates: start: 20130305
  6. VERAPAMIL [Concomitant]
     Route: 065
     Dates: start: 20121108
  7. FLUOXETIN [Concomitant]
     Route: 065
     Dates: start: 20121108

REACTIONS (2)
  - Eye haemorrhage [Recovered/Resolved with Sequelae]
  - Vitreous detachment [Recovered/Resolved with Sequelae]
